FAERS Safety Report 15904183 (Version 1)
Quarter: 2019Q1

REPORT INFORMATION
  Report Type: Spontaneous
  Country: US (occurrence: US)
  Receive Date: 20190204
  Receipt Date: 20190204
  Transmission Date: 20190417
  Serious: No
  Sender: FDA-Public Use
  Company Number: US-JNJFOC-20190125194

PATIENT
  Age: 24 Year
  Sex: Male
  Weight: 45.81 kg

DRUGS (6)
  1. PALIPERIDONE. [Suspect]
     Active Substance: PALIPERIDONE
     Indication: PRODUCT USED FOR UNKNOWN INDICATION
     Route: 048
     Dates: start: 20180101, end: 201801
  2. PALIPERIDONE. [Suspect]
     Active Substance: PALIPERIDONE
     Indication: PRODUCT USED FOR UNKNOWN INDICATION
     Dosage: 6 MG AT BEDTIME FOR 2 DOSES
     Route: 048
     Dates: start: 20180103, end: 201801
  3. LITHIUM. [Concomitant]
     Active Substance: LITHIUM
     Indication: PRODUCT USED FOR UNKNOWN INDICATION
     Dosage: FOR ^QUITEA WHILE.^ LOT NUMBER AND EXPIRATION DATE WERE NOT AVAILABLE
     Route: 065
  4. PALIPERIDONE. [Suspect]
     Active Substance: PALIPERIDONE
     Indication: PRODUCT USED FOR UNKNOWN INDICATION
     Route: 048
     Dates: start: 20180105, end: 20180115
  5. INVEGA SUSTENNA [Suspect]
     Active Substance: PALIPERIDONE PALMITATE
     Indication: BIPOLAR I DISORDER
     Dosage: 156 MG/ONE TIME INITIATION DOSE
     Route: 030
     Dates: start: 20180111
  6. INVEGA SUSTENNA [Suspect]
     Active Substance: PALIPERIDONE PALMITATE
     Indication: BIPOLAR I DISORDER
     Dosage: KIT ONE TIME INITIATION DOSE
     Route: 030
     Dates: start: 20180107, end: 20180107

REACTIONS (6)
  - Product administration error [Unknown]
  - Dysarthria [Unknown]
  - Muscle twitching [Unknown]
  - Restless legs syndrome [Unknown]
  - Drooling [Unknown]
  - Musculoskeletal stiffness [Unknown]

NARRATIVE: CASE EVENT DATE: 20180107
